FAERS Safety Report 17343355 (Version 2)
Quarter: 2020Q1

REPORT INFORMATION
  Report Type: Spontaneous
  Country: JP (occurrence: JP)
  Receive Date: 20200129
  Receipt Date: 20200204
  Transmission Date: 20200409
  Serious: Yes (Other)
  Sender: FDA-Public Use
  Company Number: JP-ASTRAZENECA-2019SF72870

PATIENT
  Age: 17356 Day
  Sex: Male

DRUGS (5)
  1. VIZIMPRO [Suspect]
     Active Substance: DACOMITINIB
     Route: 048
     Dates: start: 20191024, end: 20191030
  2. NEXIUM [Concomitant]
     Active Substance: ESOMEPRAZOLE MAGNESIUM
  3. VIZIMPRO [Suspect]
     Active Substance: DACOMITINIB
     Route: 048
     Dates: start: 20191107
  4. TAGRISSO [Suspect]
     Active Substance: OSIMERTINIB
     Indication: LUNG NEOPLASM MALIGNANT
     Route: 048
     Dates: start: 20180928
  5. TAGRISSO [Suspect]
     Active Substance: OSIMERTINIB
     Indication: LUNG NEOPLASM MALIGNANT
     Dosage: REDUCED DOSE
     Route: 048
     Dates: end: 20191007

REACTIONS (5)
  - Blood creatine phosphokinase increased [Recovering/Resolving]
  - Drug intolerance [Unknown]
  - Paronychia [Unknown]
  - Diarrhoea [Recovered/Resolved]
  - Dermatitis acneiform [Unknown]

NARRATIVE: CASE EVENT DATE: 20180928
